FAERS Safety Report 18603994 (Version 1)
Quarter: 2020Q4

REPORT INFORMATION
  Report Type: Spontaneous
  Country: SE (occurrence: SE)
  Receive Date: 20201211
  Receipt Date: 20201211
  Transmission Date: 20210114
  Serious: Yes (Death)
  Sender: FDA-Public Use
  Company Number: SE-CELLTRION INC.-2020SE033560

PATIENT

DRUGS (6)
  1. KEYTRUDA [Concomitant]
     Active Substance: PEMBROLIZUMAB
     Indication: ADENOCARCINOMA OF COLON
     Dosage: 200 MG FLAT DOSE
     Route: 042
  2. METHYLPREDNISOLONE. [Suspect]
     Active Substance: METHYLPREDNISOLONE
     Indication: PRODUCT USED FOR UNKNOWN INDICATION
     Dosage: 1 G/KG DURING 3 DAYS
  3. IMMUNOGLOBULIN I.V [Suspect]
     Active Substance: HUMAN IMMUNOGLOBULIN G
     Indication: PRODUCT USED FOR UNKNOWN INDICATION
     Route: 042
  4. PREDNISOLONE. [Concomitant]
     Active Substance: PREDNISOLONE
     Dosage: 80 MG ONCE DAILY
  5. PREDNISOLONE. [Concomitant]
     Active Substance: PREDNISOLONE
     Dosage: 50 MG ONCE DAILY
  6. INFLIXIMAB (UNKNOWN) [Suspect]
     Active Substance: INFLIXIMAB
     Indication: PRODUCT USED FOR UNKNOWN INDICATION
     Dosage: 5 MG/KG, ON DAY 37

REACTIONS (3)
  - Hypercapnia [Unknown]
  - Polymyositis [Fatal]
  - Sinus bradycardia [Unknown]
